FAERS Safety Report 4423049-1 (Version None)
Quarter: 2004Q3

REPORT INFORMATION
  Report Type: 
  Country: None (occurrence: None)
  Receive Date: 20040806
  Receipt Date: 20040728
  Transmission Date: 20050211
  Serious: Yes (Death)
  Sender: FDA-Public Use
  Company Number: PL-JNJFOC-20040701757

PATIENT
  Age: 6 Year
  Sex: Male

DRUGS (1)
  1. ACETAMINOPHEN [Suspect]

REACTIONS (12)
  - FOOD POISONING [None]
  - GASTROINTESTINAL DISORDER [None]
  - HAEMORRHAGIC DISORDER [None]
  - HEPATIC FAILURE [None]
  - HEPATIC STEATOSIS [None]
  - HEPATITIS [None]
  - HEPATOMEGALY [None]
  - HEPATOTOXICITY [None]
  - JAUNDICE [None]
  - LOSS OF CONSCIOUSNESS [None]
  - RESPIRATORY FAILURE [None]
  - SHOCK [None]
